FAERS Safety Report 10158485 (Version 1)
Quarter: 2014Q2

REPORT INFORMATION
  Report Type: Spontaneous
  Country: US (occurrence: US)
  Receive Date: 20140507
  Receipt Date: 20140507
  Transmission Date: 20141212
  Serious: No
  Sender: FDA-Public Use
  Company Number: US-AMGEN-USASP2013079692

PATIENT
  Age: 73 Year
  Sex: Male

DRUGS (1)
  1. ARANESP [Suspect]
     Indication: ANAEMIA
     Dosage: 200 MUG, Q3WK
     Route: 042
     Dates: start: 20130927

REACTIONS (6)
  - Musculoskeletal pain [Unknown]
  - Pain in extremity [Unknown]
  - Back pain [Unknown]
  - Pain in extremity [Unknown]
  - Chest pain [Unknown]
  - Dyspnoea [Unknown]
